FAERS Safety Report 22033548 (Version 1)
Quarter: 2023Q1

REPORT INFORMATION
  Report Type: Report from Study
  Country: US (occurrence: US)
  Receive Date: 20230224
  Receipt Date: 20230224
  Transmission Date: 20230418
  Serious: Yes (Hospitalization)
  Sender: FDA-Public Use
  Company Number: US-MYLANLABS-2023M1018540

PATIENT
  Sex: Male
  Weight: 73.48 kg

DRUGS (3)
  1. SILDENAFIL [Suspect]
     Active Substance: SILDENAFIL
     Indication: Product used for unknown indication
     Dosage: UNK
     Route: 065
  2. REMODULIN [Suspect]
     Active Substance: TREPROSTINIL
     Indication: Pulmonary arterial hypertension
     Dosage: 0.0042 UG/KG
     Route: 058
     Dates: end: 2023
  3. OPSUMIT [Concomitant]
     Active Substance: MACITENTAN
     Dosage: UNK
     Route: 065

REACTIONS (5)
  - Blood pressure decreased [Unknown]
  - Asthenia [Unknown]
  - Dyspnoea [Unknown]
  - Fatigue [Unknown]
  - Feeling abnormal [Unknown]
